FAERS Safety Report 11611243 (Version 1)
Quarter: 2015Q4

REPORT INFORMATION
  Report Type: Report from Study
  Country: CA (occurrence: CA)
  Receive Date: 20151008
  Receipt Date: 20151008
  Transmission Date: 20160304
  Serious: Yes (Other)
  Sender: FDA-Public Use
  Company Number: PHHY2014CA080862

PATIENT
  Age: 78 Year
  Sex: Female

DRUGS (3)
  1. ACLASTA [Suspect]
     Active Substance: ZOLEDRONIC ACID
     Indication: OSTEOPOROSIS
     Dosage: 5 MG, UNK
     Route: 042
     Dates: start: 20130227
  2. ACLASTA [Suspect]
     Active Substance: ZOLEDRONIC ACID
     Dosage: 5 MG, UNK
     Route: 042
     Dates: start: 20140711
  3. MAGNESIUM [Concomitant]
     Active Substance: MAGNESIUM
     Indication: IMMUNE SYSTEM DISORDER
     Route: 065

REACTIONS (7)
  - Immune system disorder [Unknown]
  - Influenza [Recovered/Resolved]
  - Diarrhoea [Unknown]
  - Upper limb fracture [Unknown]
  - Fibromyalgia [Unknown]
  - Pain in extremity [Unknown]
  - Fall [Unknown]

NARRATIVE: CASE EVENT DATE: 201412
